FAERS Safety Report 26121639 (Version 1)
Quarter: 2025Q4

REPORT INFORMATION
  Report Type: Spontaneous
  Country: US (occurrence: None)
  Receive Date: 20251203
  Receipt Date: 20251203
  Transmission Date: 20260118
  Serious: Yes (unspecified)
  Sender: FDA-CTU
  Company Number: None

PATIENT
  Age: 23 Year
  Sex: Female
  Weight: 55.35 kg

DRUGS (3)
  1. MONISTAT 7 [Suspect]
     Active Substance: MICONAZOLE NITRATE
     Indication: Fungal infection
     Route: 067
     Dates: start: 20251129, end: 20251201
  2. DIFLUCAN [Suspect]
     Active Substance: FLUCONAZOLE
  3. PROBIOTICS NOS [Concomitant]
     Active Substance: PROBIOTICS NOS

REACTIONS (8)
  - Vulvovaginal pruritus [None]
  - Urethritis noninfective [None]
  - Burning sensation [None]
  - Skin irritation [None]
  - Therapy change [None]
  - Dysuria [None]
  - Discomfort [None]
  - Gait disturbance [None]

NARRATIVE: CASE EVENT DATE: 20251203
